FAERS Safety Report 5099889-5 (Version None)
Quarter: 2006Q3

REPORT INFORMATION
  Report Type: 
  Country: None (occurrence: None)
  Receive Date: 20060908
  Receipt Date: 20060817
  Transmission Date: 20061208
  Serious: Yes (Life-Threatening)
  Sender: FDA-Public Use
  Company Number: FR-AVENTIS-200612914FR

PATIENT
  Age: 73 Year
  Sex: Male
  Weight: 83 kg

DRUGS (3)
  1. TAXOTERE [Suspect]
     Indication: LUNG NEOPLASM MALIGNANT
     Route: 042
     Dates: start: 20060815, end: 20060815
  2. SOLU-MEDROL [Concomitant]
     Indication: PROPHYLACTIC CHEMOTHERAPY
     Route: 042
     Dates: start: 20060815
  3. ZOPHREN [Concomitant]
     Indication: PROPHYLACTIC CHEMOTHERAPY
     Route: 042
     Dates: start: 20060815

REACTIONS (5)
  - BACK PAIN [None]
  - CHOKING [None]
  - CYANOSIS [None]
  - FEELING HOT [None]
  - INFUSION RELATED REACTION [None]
